FAERS Safety Report 5926958-7 (Version None)
Quarter: 2008Q4

REPORT INFORMATION
  Report Type: 
  Country: None (occurrence: None)
  Receive Date: 20081021
  Receipt Date: 20081021
  Transmission Date: 20090506
  Serious: Yes (Death)
  Sender: FDA-Public Use
  Company Number: None

PATIENT
  Age: 70 Year
  Sex: Female
  Weight: 77.1115 kg

DRUGS (1)
  1. HEPARIN [Suspect]

REACTIONS (3)
  - ASTHENIA [None]
  - DYSPNOEA [None]
  - PRODUCT QUALITY ISSUE [None]
